FAERS Safety Report 5799055-1 (Version None)
Quarter: 2008Q3

REPORT INFORMATION
  Report Type: 
  Country: None (occurrence: None)
  Receive Date: 20080701
  Receipt Date: 20080630
  Transmission Date: 20090109
  Serious: No
  Sender: FDA-Public Use
  Company Number: TPA2008A00443

PATIENT
  Age: 8 Decade
  Sex: Female

DRUGS (1)
  1. ACTOS [Suspect]
     Indication: TYPE 2 DIABETES MELLITUS
     Dosage: 15 MG, 1 IN  1D, PER ORAL
     Route: 048
     Dates: start: 20060503, end: 20061130

REACTIONS (1)
  - DRUG HYPERSENSITIVITY [None]
